FAERS Safety Report 4801479-3 (Version None)
Quarter: 2005Q4

REPORT INFORMATION
  Report Type: 
  Country: None (occurrence: None)
  Receive Date: 20051018
  Receipt Date: 20051007
  Transmission Date: 20060501
  Serious: Yes (Other)
  Sender: FDA-Public Use
  Company Number: FR-JNJFOC-20050905218

PATIENT
  Age: 38 Year
  Sex: Male
  Weight: 74 kg

DRUGS (9)
  1. REMICADE [Suspect]
     Route: 042
  2. REMICADE [Suspect]
     Route: 042
  3. REMICADE [Suspect]
     Route: 042
  4. REMICADE [Suspect]
     Route: 042
  5. REMICADE [Suspect]
     Route: 042
  6. REMICADE [Suspect]
     Indication: ANKYLOSING SPONDYLITIS
     Dosage: LAST INFUSION
     Route: 042
  7. LANZOR [Concomitant]
     Indication: ULCER
     Route: 048
  8. DETENSIEL 10 [Concomitant]
     Indication: HYPERTENSION
     Route: 048
  9. AMLOR 5 [Concomitant]
     Indication: HYPERTENSION
     Route: 048

REACTIONS (1)
  - ACUTE CORONARY SYNDROME [None]
